FAERS Safety Report 15691104 (Version 2)
Quarter: 2019Q1

REPORT INFORMATION
  Report Type: Spontaneous
  Country: CZ (occurrence: CZ)
  Receive Date: 20181205
  Receipt Date: 20190110
  Transmission Date: 20190417
  Serious: No
  Sender: FDA-Public Use
  Company Number: CZ-SAKK-2018SA330201AA

PATIENT
  Age: 41 Year
  Sex: Male
  Weight: 90 kg

DRUGS (6)
  1. INSULINE ASPARTATE [Concomitant]
     Dosage: 6 U, TID
  2. INSULIN GLARGINE [Suspect]
     Active Substance: INSULIN GLARGINE
     Indication: TYPE 1 DIABETES MELLITUS
     Dosage: 21 U, QD
  3. INSULINE ASPARTATE [Concomitant]
     Indication: TYPE 1 DIABETES MELLITUS
     Dosage: 10-10-8IU DAILY
     Route: 058
     Dates: start: 2015
  4. METFORMIN HYDROCHLORIDE. [Suspect]
     Active Substance: METFORMIN HYDROCHLORIDE
     Indication: TYPE 1 DIABETES MELLITUS
     Dosage: 500 MG, QD
     Route: 048
     Dates: start: 201508
  5. INSULINE ASPARTATE [Concomitant]
     Dosage: 5 UNITS BEFORE MEALS
  6. INSULINE ASPARTATE [Concomitant]
     Dosage: 20 U

REACTIONS (6)
  - Decreased appetite [Recovered/Resolved]
  - Constipation [Recovered/Resolved]
  - Abdominal pain [Recovered/Resolved]
  - Fatigue [Recovered/Resolved]
  - Asthenia [Recovered/Resolved]
  - Back pain [Recovered/Resolved]
